FAERS Safety Report 14567180 (Version 2)
Quarter: 2018Q1

REPORT INFORMATION
  Report Type: Spontaneous
  Country: US (occurrence: US)
  Receive Date: 20180223
  Receipt Date: 20180319
  Transmission Date: 20180509
  Serious: Yes (Other)
  Sender: FDA-Public Use
  Company Number: US-PROCTER_AND_GAMBLE-GS18020460

PATIENT
  Age: 46 Year
  Sex: Female
  Weight: 77.1 kg

DRUGS (3)
  1. CREST TARTAR PROTECTION [Suspect]
     Active Substance: SODIUM FLUORIDE
     Dosage: GENEROUS AMOUNT, TWICE DAILY
     Route: 002
     Dates: start: 20180213, end: 20180214
  2. HYDROGEN PEROXIDE. [Concomitant]
     Active Substance: HYDROGEN PEROXIDE
  3. EXCEDRIN [Concomitant]
     Active Substance: ACETAMINOPHEN\ASPIRIN\CAFFEINE
     Dosage: X2

REACTIONS (2)
  - Tooth loss [Not Recovered/Not Resolved]
  - Gingival bleeding [Recovered/Resolved]

NARRATIVE: CASE EVENT DATE: 20180215
